FAERS Safety Report 4846544-X (Version None)
Quarter: 2005Q4

REPORT INFORMATION
  Report Type: 
  Country: None (occurrence: None)
  Receive Date: 20051128
  Receipt Date: 20050531
  Transmission Date: 20060501
  Serious: Yes (Death, Other)
  Sender: FDA-Public Use
  Company Number: 2005BH000091

PATIENT
  Age: 84 Year
  Sex: Male

DRUGS (1)
  1. INTRAGAM (CSL AUSTRALIA) [Suspect]
     Indication: GUILLAIN-BARRE SYNDROME
     Dosage: 400 MG/KG;EVERY DAY;IV
     Route: 042

REACTIONS (3)
  - BRONCHOPNEUMONIA [None]
  - CEREBROVASCULAR ACCIDENT [None]
  - HAEMORRHAGIC CEREBRAL INFARCTION [None]
